FAERS Safety Report 13225176 (Version 1)
Quarter: 2017Q1

REPORT INFORMATION
  Report Type: Spontaneous
  Country: US (occurrence: US)
  Receive Date: 20170210
  Receipt Date: 20170210
  Transmission Date: 20170428
  Serious: Yes (Disabling)
  Sender: FDA-Public Use
  Company Number: None

PATIENT
  Age: 64 Year
  Sex: Female
  Weight: 96.75 kg

DRUGS (6)
  1. NEXIUM [Concomitant]
     Active Substance: ESOMEPRAZOLE MAGNESIUM
  2. IBUPROFEN. [Concomitant]
     Active Substance: IBUPROFEN
  3. LEVAQUIN [Suspect]
     Active Substance: LEVOFLOXACIN
     Indication: URINARY TRACT INFECTION
     Dosage: ?          QUANTITY:3 CAPSULE(S);?
     Route: 048
     Dates: start: 20170104
  4. PREDNISONE. [Concomitant]
     Active Substance: PREDNISONE
  5. TEKTURNA [Concomitant]
     Active Substance: ALISKIREN HEMIFUMARATE
  6. VITAMIN C BONE STRENGTH [Concomitant]

REACTIONS (6)
  - Peripheral swelling [None]
  - Abdominal pain upper [None]
  - Lip injury [None]
  - Thermal burn [None]
  - Lip exfoliation [None]
  - Pain [None]

NARRATIVE: CASE EVENT DATE: 20170109
